FAERS Safety Report 4575903-8 (Version None)
Quarter: 2005Q1

REPORT INFORMATION
  Report Type: 
  Country: None (occurrence: None)
  Receive Date: 20050209
  Receipt Date: 20041112
  Transmission Date: 20050727
  Serious: Yes (Death)
  Sender: FDA-Public Use
  Company Number: US-AMGEN-US099511

PATIENT
  Sex: Female
  Weight: 49.5 kg

DRUGS (5)
  1. PROCRIT [Suspect]
     Indication: RENAL FAILURE CHRONIC
     Dates: start: 20040101
  2. PAXIL [Concomitant]
     Route: 048
     Dates: start: 20031101
  3. HYDRALAZINE HCL [Concomitant]
     Dates: start: 20031101
  4. DIGOXIN [Concomitant]
  5. VERELAN [Concomitant]

REACTIONS (7)
  - ABDOMINAL PAIN UPPER [None]
  - GASTROINTESTINAL DISORDER [None]
  - INTESTINAL INFARCTION [None]
  - NAUSEA [None]
  - THERAPY NON-RESPONDER [None]
  - THROMBOSIS [None]
  - VOMITING [None]
